FAERS Safety Report 18391888 (Version 2)
Quarter: 2022Q1

REPORT INFORMATION
  Report Type: Other
  Country: DK (occurrence: DK)
  Receive Date: 20201016
  Receipt Date: 20220207
  Transmission Date: 20220423
  Serious: Yes (Hospitalization, Disabling, Other)
  Sender: FDA-Public Use
  Company Number: None

PATIENT
  Age: 61 Year
  Sex: Female

DRUGS (2)
  1. OMNIPAQUE [Suspect]
     Active Substance: IOHEXOL
     Indication: Computerised tomogram head
     Dosage: 70 ML, SINGLE
     Route: 037
     Dates: start: 20170712, end: 20170712
  2. OMNIPAQUE [Suspect]
     Active Substance: IOHEXOL
     Indication: Headache

REACTIONS (4)
  - Liver disorder [Recovered/Resolved]
  - Basedow^s disease [Unknown]
  - Hyperthyroidism [Unknown]
  - Oedema peripheral [Recovered/Resolved]

NARRATIVE: CASE EVENT DATE: 20170701
